FAERS Safety Report 14937701 (Version 1)
Quarter: 2018Q2

REPORT INFORMATION
  Report Type: Spontaneous
  Country: FR (occurrence: FR)
  Receive Date: 20180525
  Receipt Date: 20180525
  Transmission Date: 20180711
  Serious: Yes (Death)
  Sender: FDA-Public Use
  Company Number: PHHY2018FR007306

PATIENT
  Age: 64 Year
  Sex: Male
  Weight: 74 kg

DRUGS (1)
  1. GLIVEC [Suspect]
     Active Substance: IMATINIB MESYLATE
     Indication: CHRONIC MYELOID LEUKAEMIA
     Dosage: 1 UG/L, QD
     Route: 048
     Dates: end: 20180203

REACTIONS (3)
  - Upper respiratory tract infection [Fatal]
  - Meningitis pneumococcal [Fatal]
  - Influenza [Fatal]

NARRATIVE: CASE EVENT DATE: 20180102
